FAERS Safety Report 14705190 (Version 1)
Quarter: 2018Q2

REPORT INFORMATION
  Report Type: Spontaneous
  Country: US (occurrence: US)
  Receive Date: 20180402
  Receipt Date: 20180402
  Transmission Date: 20180711
  Serious: Yes (Hospitalization)
  Sender: FDA-Public Use
  Company Number: US-TEVA-2018-US-877800

PATIENT
  Age: 76 Year
  Sex: Female

DRUGS (5)
  1. ACTONEL [Suspect]
     Active Substance: RISEDRONATE SODIUM
     Indication: BONE LOSS
     Route: 048
     Dates: start: 2004, end: 2010
  2. CALCIUM [Concomitant]
     Active Substance: CALCIUM
     Indication: PRODUCT USED FOR UNKNOWN INDICATION
  3. NORVASC [Concomitant]
     Active Substance: AMLODIPINE BESYLATE
     Indication: PRODUCT USED FOR UNKNOWN INDICATION
  4. TOPROL XL [Concomitant]
     Active Substance: METOPROLOL SUCCINATE
     Dates: start: 2010, end: 2014
  5. PRAVACHOL [Concomitant]
     Active Substance: PRAVASTATIN SODIUM

REACTIONS (14)
  - Clostridium difficile infection [Unknown]
  - Pain [Unknown]
  - Diarrhoea [Unknown]
  - Reading disorder [Unknown]
  - Abdominal pain upper [Unknown]
  - Fibromyalgia [Unknown]
  - Nail infection [Unknown]
  - Abdominal distension [Unknown]
  - Hallucination [Unknown]
  - Thrombosis [Unknown]
  - Feeling abnormal [Unknown]
  - Escherichia infection [Unknown]
  - Neck pain [Unknown]
  - Mental impairment [Unknown]
